FAERS Safety Report 8066605-4 (Version None)
Quarter: 2012Q1

REPORT INFORMATION
  Report Type: 
  Country: None (occurrence: None)
  Receive Date: 20120124
  Receipt Date: 20120117
  Transmission Date: 20120608
  Serious: Yes (Hospitalization)
  Sender: FDA-Public Use
  Company Number: PHHY2012FR004735

PATIENT
  Sex: Male

DRUGS (4)
  1. VOLTAREN [Suspect]
     Indication: BACK PAIN
     Dosage: 1 DF, QD (IN EVENING)
     Route: 048
     Dates: start: 20110921
  2. METHOCARBAMOL [Suspect]
     Indication: BACK PAIN
     Dosage: 500 MG, QD
     Dates: start: 20110922
  3. VOLTAREN [Suspect]
     Dosage: 1 DF, IN THE MORNING
     Route: 048
     Dates: start: 20110922
  4. XYLOCAINE [Suspect]
     Indication: LOCAL ANAESTHESIA
     Dosage: UNK

REACTIONS (6)
  - ERYTHEMA [None]
  - DIZZINESS [None]
  - HYPOTENSION [None]
  - HEAD INJURY [None]
  - MALAISE [None]
  - FALL [None]
